FAERS Safety Report 8778123 (Version 1)
Quarter: 2012Q4

REPORT INFORMATION
  Report Type: 
  Country: US (occurrence: US)
  Receive Date: 20120912
  Receipt Date: 20120912
  Transmission Date: 20130627
  Serious: Yes (Hospitalization)
  Sender: FDA-Public Use
  Company Number: US-EISAI INC-E2020-11287-SPO-US

PATIENT
  Age: 2 Year
  Sex: Female

DRUGS (2)
  1. DONEPEZIL [Suspect]
     Dosage: unknown
     Route: 048
  2. MEMANTINE [Suspect]
     Dosage: unknown
     Route: 048

REACTIONS (2)
  - Encephalopathy [Recovering/Resolving]
  - Accidental exposure to product [Recovering/Resolving]
